FAERS Safety Report 9386091 (Version 2)
Quarter: 2013Q3

REPORT INFORMATION
  Report Type: Spontaneous
  Country: US (occurrence: US)
  Receive Date: 20130706
  Receipt Date: 20130725
  Transmission Date: 20140515
  Serious: Yes (Other)
  Sender: FDA-Public Use
  Company Number: US-UCBSA-090646

PATIENT
  Age: 51 Year
  Sex: Female
  Weight: 125.9 kg

DRUGS (6)
  1. CIMZIA [Suspect]
     Indication: CROHN^S DISEASE
     Dates: start: 20100624
  2. ZPAK [Concomitant]
     Indication: BACTERIAL INFECTION
     Dosage: UNKNOWN
     Dates: start: 20130615
  3. LISINOPRIL [Concomitant]
     Indication: HYPERTENSION
     Dosage: DOSE - 10 MD QD
  4. ATENOLOL [Concomitant]
     Indication: HYPERTENSION
     Dosage: DOSE - 40 MG
  5. METFORMIN [Concomitant]
  6. VITAMIN D [Concomitant]
     Dosage: DOSE- 5000 UNITS ONCE A WEEK

REACTIONS (3)
  - Herpes zoster [Recovered/Resolved]
  - Bacterial infection [Recovered/Resolved]
  - Malaise [Not Recovered/Not Resolved]
